FAERS Safety Report 9643889 (Version 1)
Quarter: 2013Q4

REPORT INFORMATION
  Report Type: Spontaneous
  Country: US (occurrence: US)
  Receive Date: 20131024
  Receipt Date: 20131024
  Transmission Date: 20140711
  Serious: No
  Sender: FDA-Public Use
  Company Number: US-009507513-1310USA011406

PATIENT
  Sex: Female

DRUGS (1)
  1. TINACTIN SPRAY POWDER [Suspect]
     Indication: TINEA PEDIS
     Dosage: UNK, UNKNOWN
     Route: 061

REACTIONS (2)
  - Product quality issue [Unknown]
  - Expired drug administered [Unknown]
